FAERS Safety Report 7739200-1 (Version None)
Quarter: 2011Q3

REPORT INFORMATION
  Report Type: 
  Country: None (occurrence: None)
  Receive Date: 20110909
  Receipt Date: 20110902
  Transmission Date: 20111222
  Serious: No
  Sender: FDA-Public Use
  Company Number: US-PFIZER INC-2011209321

PATIENT
  Age: 17 Year
  Sex: Female

DRUGS (1)
  1. NORGESTREL AND ETHINYL ESTRADIOL [Suspect]
     Dosage: 1 TABLET 1 X/DAY
     Route: 048

REACTIONS (2)
  - ABDOMINAL PAIN UPPER [None]
  - THROAT TIGHTNESS [None]
